FAERS Safety Report 14641946 (Version 1)
Quarter: 2018Q1

REPORT INFORMATION
  Report Type: Spontaneous
  Country: US (occurrence: US)
  Receive Date: 20180315
  Receipt Date: 20180315
  Transmission Date: 20180509
  Serious: Yes (Other)
  Sender: FDA-Public Use
  Company Number: None

PATIENT
  Age: 73 Year
  Sex: Female
  Weight: 83.7 kg

DRUGS (1)
  1. AMLODIPINE [Suspect]
     Active Substance: AMLODIPINE BESYLATE
     Indication: HYPERTENSION
     Route: 048
     Dates: start: 20180310, end: 20180310

REACTIONS (9)
  - Thinking abnormal [None]
  - Throat tightness [None]
  - Headache [None]
  - Emotional disorder [None]
  - Flushing [None]
  - Dyspepsia [None]
  - Wheezing [None]
  - Nasopharyngitis [None]
  - Screaming [None]

NARRATIVE: CASE EVENT DATE: 20180310
